FAERS Safety Report 11769316 (Version 1)
Quarter: 2015Q4

REPORT INFORMATION
  Report Type: Spontaneous
  Country: US (occurrence: US)
  Receive Date: 20151123
  Receipt Date: 20151123
  Transmission Date: 20160304
  Serious: Yes (Hospitalization, Other)
  Sender: FDA-Public Use
  Company Number: US-SHIRE-US201513963

PATIENT
  Sex: Male
  Weight: 54.42 kg

DRUGS (2)
  1. PENTASA [Suspect]
     Active Substance: MESALAMINE
     Indication: CROHN^S DISEASE
     Dosage: 1500 MG (THREE 500 MG CAPSULES), 2X/DAY:QD (WITH BREAKFAST AND LUNCH)
     Route: 048
  2. PENTASA [Suspect]
     Active Substance: MESALAMINE
     Dosage: 1000 MG (TWO 500 MG CAPSULES, 1X/DAY:QD (WITH DINNER)
     Route: 048

REACTIONS (2)
  - Crohn^s disease [Recovered/Resolved]
  - Product use issue [Not Recovered/Not Resolved]

NARRATIVE: CASE EVENT DATE: 2004
